FAERS Safety Report 11771573 (Version 2)
Quarter: 2017Q1

REPORT INFORMATION
  Report Type: Spontaneous
  Country: TR (occurrence: TR)
  Receive Date: 20151124
  Receipt Date: 20170215
  Transmission Date: 20170428
  Serious: Yes (Hospitalization, Other)
  Sender: FDA-Public Use
  Company Number: TR-SUN PHARMACEUTICAL INDUSTRIES LTD-2015R1-106400

PATIENT
  Sex: Female

DRUGS (2)
  1. KAPRIL (CAPTOPRIL) [Suspect]
     Active Substance: CAPTOPRIL
     Indication: PRODUCT USED FOR UNKNOWN INDICATION
     Dosage: 2 TABLETS OF 25 MG
     Route: 048
  2. RYTMONORM 300 [Suspect]
     Active Substance: PROPAFENONE HYDROCHLORIDE
     Indication: PRODUCT USED FOR UNKNOWN INDICATION
     Dosage: 30 TABLETS OF 300 MG
     Route: 048

REACTIONS (4)
  - Haemodynamic instability [Recovering/Resolving]
  - Atrioventricular block [Recovering/Resolving]
  - Cardio-respiratory arrest [Recovering/Resolving]
  - Toxicity to various agents [Recovering/Resolving]
